FAERS Safety Report 15195138 (Version 5)
Quarter: 2019Q4

REPORT INFORMATION
  Report Type: Spontaneous
  Country: IN (occurrence: IN)
  Receive Date: 20180725
  Receipt Date: 20191128
  Transmission Date: 20200122
  Serious: Yes (Other)
  Sender: FDA-Public Use
  Company Number: IN-PFIZER INC-2017177361

PATIENT
  Age: 74 Year
  Sex: Female

DRUGS (5)
  1. LETROZOLE. [Concomitant]
     Active Substance: LETROZOLE
     Dosage: 2.5 MG, 1X/DAY
  2. PALBACE [Suspect]
     Active Substance: PALBOCICLIB
     Indication: BREAST CANCER METASTATIC
     Dosage: 100 MG, 1X/DAY
     Route: 048
     Dates: start: 20170420, end: 20170514
  3. SHELCAL [Concomitant]
     Active Substance: CALCIUM CARBONATE\CHOLECALCIFEROL
     Dosage: 100 MG, 1X/DAY
  4. PALBACE [Suspect]
     Active Substance: PALBOCICLIB
     Dosage: 125 MG, CYCLIC (21 DAYS; 10 CYCLES)
     Route: 048
  5. PALBACE [Suspect]
     Active Substance: PALBOCICLIB
     Dosage: UNK
     Route: 048

REACTIONS (7)
  - Cerebral thrombosis [Recovered/Resolved]
  - Toothache [Unknown]
  - Coma [Recovered/Resolved]
  - Skin disorder [Unknown]
  - Insomnia [Recovering/Resolving]
  - Cough [Unknown]
  - Full blood count decreased [Unknown]

NARRATIVE: CASE EVENT DATE: 2017
